FAERS Safety Report 7755032-2 (Version None)
Quarter: 2011Q3

REPORT INFORMATION
  Report Type: 
  Country: None (occurrence: None)
  Receive Date: 20110913
  Receipt Date: 20110831
  Transmission Date: 20111222
  Serious: Yes (Death)
  Sender: FDA-Public Use
  Company Number: UTC-009872

PATIENT
  Age: 73 Year
  Sex: Female
  Weight: 60 kg

DRUGS (3)
  1. COUMADIN [Concomitant]
  2. LETAIRIS [Concomitant]
  3. REMODULIN [Suspect]
     Indication: PULMONARY ARTERIAL HYPERTENSION
     Dosage: 44.64 UG/KG (0.031 UG/KG,1 IN 1 MIN) ,SUBCUTANEOUS
     Route: 058
     Dates: start: 20081103

REACTIONS (1)
  - DEATH [None]
